FAERS Safety Report 16438542 (Version 3)
Quarter: 2019Q3

REPORT INFORMATION
  Report Type: Report from Study
  Country: BR (occurrence: BR)
  Receive Date: 20190617
  Receipt Date: 20190703
  Transmission Date: 20191004
  Serious: Yes (Hospitalization, Other)
  Sender: FDA-Public Use
  Company Number: BR-BIOGEN-2019BI00743279

PATIENT
  Age: 2 Year
  Sex: Female
  Weight: 9.29 kg

DRUGS (1)
  1. SPINRAZA [Suspect]
     Active Substance: NUSINERSEN
     Indication: SPINAL MUSCULAR ATROPHY
     Route: 037
     Dates: start: 20180118

REACTIONS (7)
  - Discomfort [Unknown]
  - Pneumonia [Recovered/Resolved]
  - Pallor [Unknown]
  - Fatigue [Recovered/Resolved]
  - Weight decreased [Unknown]
  - Secretion discharge [Recovered/Resolved]
  - Cardio-respiratory arrest [Recovered/Resolved]

NARRATIVE: CASE EVENT DATE: 20190520
